FAERS Safety Report 8600152 (Version 3)
Quarter: 2012Q4

REPORT INFORMATION
  Report Type: Report from Study
  Country: GB (occurrence: GB)
  Receive Date: 20120605
  Receipt Date: 20120925
  Transmission Date: 20130627
  Serious: Yes (Life-Threatening, Hospitalization, Other)
  Sender: FDA-Public Use
  Company Number: GB-ROCHE-614843

PATIENT
  Age: 56 Year
  Sex: Female

DRUGS (5)
  1. MABTHERA [Suspect]
     Indication: RHEUMATOID ARTHRITIS
     Route: 065
  2. LEFLUNOMIDE [Concomitant]
     Route: 065
  3. SULPHASALAZINE [Concomitant]
     Route: 065
  4. NAPROSYN [Concomitant]
     Route: 065
     Dates: end: 20081211
  5. RAMIPRIL [Concomitant]
     Route: 065

REACTIONS (6)
  - Myocardial infarction [Unknown]
  - Acute coronary syndrome [Unknown]
  - Acute myocardial infarction [Recovering/Resolving]
  - Ejection fraction decreased [Unknown]
  - Hypotension [Unknown]
  - Glomerular filtration rate decreased [Unknown]
